FAERS Safety Report 12352378 (Version 6)
Quarter: 2016Q3

REPORT INFORMATION
  Report Type: Spontaneous
  Country: DK (occurrence: DK)
  Receive Date: 20160510
  Receipt Date: 20160715
  Transmission Date: 20161109
  Serious: Yes (Other)
  Sender: FDA-Public Use
  Company Number: DK-JNJFOC-20160506440

PATIENT
  Sex: Male

DRUGS (3)
  1. SERENASE [Suspect]
     Active Substance: HALOPERIDOL
     Indication: SCHIZOPHRENIA
     Route: 048
     Dates: start: 2008
  2. SERENASE [Suspect]
     Active Substance: HALOPERIDOL
     Indication: SCHIZOPHRENIA
     Route: 048
     Dates: start: 20160122, end: 20160225
  3. SERENASE [Suspect]
     Active Substance: HALOPERIDOL
     Indication: SCHIZOPHRENIA
     Route: 048
     Dates: start: 20160115, end: 20160117

REACTIONS (3)
  - Restlessness [Unknown]
  - Aggression [Unknown]
  - Dementia [Not Recovered/Not Resolved]
